FAERS Safety Report 6714463-X (Version None)
Quarter: 2010Q2

REPORT INFORMATION
  Report Type: 
  Country: None (occurrence: None)
  Receive Date: 20100506
  Receipt Date: 20100504
  Transmission Date: 20101027
  Serious: Yes (Other)
  Sender: FDA-Public Use
  Company Number: SE-ALLERGAN-1005830US

PATIENT
  Age: 38 Year
  Sex: Female

DRUGS (2)
  1. BOTOX [Suspect]
     Indication: HEREDITARY SPASTIC PARAPLEGIA
     Dosage: 520 UNITS, SINGLE
     Route: 030
     Dates: start: 20091202, end: 20091202
  2. BOTOX [Suspect]
     Indication: SPINOCEREBELLAR ATAXIA

REACTIONS (5)
  - FATIGUE [None]
  - MALAISE [None]
  - MUSCULAR WEAKNESS [None]
  - OROPHARYNGEAL DISCOMFORT [None]
  - VISION BLURRED [None]
